FAERS Safety Report 19660333 (Version 1)
Quarter: 2021Q3

REPORT INFORMATION
  Report Type: Spontaneous
  Country: US (occurrence: US)
  Receive Date: 20210805
  Receipt Date: 20210805
  Transmission Date: 20211014
  Serious: No
  Sender: FDA-Public Use
  Company Number: None

PATIENT
  Sex: Female

DRUGS (1)
  1. PROLIA [Suspect]
     Active Substance: DENOSUMAB
     Indication: OSTEOPOROSIS

REACTIONS (13)
  - Blood pressure inadequately controlled [None]
  - Paralysis [None]
  - Gingival disorder [None]
  - Pain in extremity [None]
  - Cardiac disorder [None]
  - Suicidal ideation [None]
  - Arthralgia [None]
  - Eye disorder [None]
  - Respiratory syncytial virus infection [None]
  - Dysstasia [None]
  - Urticaria [None]
  - Hypersensitivity [None]
  - Toothache [None]

NARRATIVE: CASE EVENT DATE: 20210101
